FAERS Safety Report 10103111 (Version 1)
Quarter: 2014Q2

REPORT INFORMATION
  Report Type: Spontaneous
  Country: US (occurrence: US)
  Receive Date: 20140424
  Receipt Date: 20140424
  Transmission Date: 20141212
  Serious: Yes (Other)
  Sender: FDA-Public Use
  Company Number: US-GLAXOSMITHKLINE-A1069961A

PATIENT
  Age: 65 Year
  Sex: Female

DRUGS (10)
  1. BREO ELLIPTA [Suspect]
     Indication: CHRONIC OBSTRUCTIVE PULMONARY DISEASE
     Dosage: 1PUFF PER DAY
     Route: 055
     Dates: start: 201403
  2. BROVANA [Suspect]
     Indication: CHRONIC OBSTRUCTIVE PULMONARY DISEASE
     Route: 055
  3. DUONEB [Concomitant]
  4. XANAX [Concomitant]
  5. LASIX [Concomitant]
  6. ACETAMINOPHEN [Concomitant]
  7. MULTIVITAMIN [Concomitant]
  8. VITAMIN D [Concomitant]
  9. VITAMIN C [Concomitant]
  10. ANTACID [Concomitant]

REACTIONS (2)
  - Bone pain [Not Recovered/Not Resolved]
  - Autoimmune disorder [Unknown]
